FAERS Safety Report 5454649-8 (Version None)
Quarter: 2007Q3

REPORT INFORMATION
  Report Type: 
  Country: None (occurrence: None)
  Receive Date: 20070917
  Receipt Date: 20060803
  Transmission Date: 20080115
  Serious: Yes (Other)
  Sender: FDA-Public Use
  Company Number: US-ASTRAZENECA-2006UW15598

PATIENT
  Sex: Female

DRUGS (3)
  1. SEROQUEL [Suspect]
     Route: 048
  2. ZOLOFT [Concomitant]
     Indication: DEPRESSION
  3. VALIUM [Concomitant]

REACTIONS (3)
  - AKATHISIA [None]
  - CONSTIPATION [None]
  - URINARY RETENTION [None]
